FAERS Safety Report 5503481-5 (Version None)
Quarter: 2007Q4

REPORT INFORMATION
  Report Type: 
  Country: None (occurrence: None)
  Receive Date: 20071029
  Receipt Date: 20071022
  Transmission Date: 20080405
  Serious: Yes (Other)
  Sender: FDA-Public Use
  Company Number: OMPQ-NO-0710L-1299

PATIENT
  Sex: Female

DRUGS (4)
  1. OMNIPAQUE 140 [Suspect]
     Indication: CORONARY ANGIOPLASTY
     Dosage: 120 ML,SINGLE DOSE, CORONARY SINGLE DOSE
  2. ANTIPLATELET THERAPY [Concomitant]
  3. PROMETHAZINE [Concomitant]
  4. METOCLOPRAMIDE [Concomitant]

REACTIONS (4)
  - AMNESIA [None]
  - APNOEA [None]
  - ENCEPHALOPATHY [None]
  - TACHYPNOEA [None]
